FAERS Safety Report 8576230 (Version 2)
Quarter: 2014Q1

REPORT INFORMATION
  Report Type: Spontaneous
  Country: US (occurrence: None)
  Receive Date: 20120323
  Receipt Date: 20130305
  Transmission Date: 20141002
  Serious: Yes (Hospitalization, Other)
  Sender: FDA-Public Use
  Company Number: 163-21880-11041337

PATIENT
  Age: 79 Year
  Sex: Female

DRUGS (2)
  1. REVLIMID [Suspect]
     Indication: PLASMA CELL MYELOMA
     Route: 048
     Dates: start: 20100617
  2. LASIX (FUROSEMIDE) [Concomitant]

REACTIONS (4)
  - Cardiac failure congestive [None]
  - Oedema peripheral [None]
  - Fatigue [None]
  - Nephrogenic anaemia [None]
